FAERS Safety Report 7660516-1 (Version None)
Quarter: 2011Q3

REPORT INFORMATION
  Report Type: 
  Country: None (occurrence: None)
  Receive Date: 20110805
  Receipt Date: 20110727
  Transmission Date: 20111222
  Serious: Yes (Hospitalization, Congenital Anomaly)
  Sender: FDA-Public Use
  Company Number: JP-MERCK-1107USA04000B1

PATIENT
  Age: 2 Day
  Weight: 1 kg

DRUGS (1)
  1. DECADRON [Suspect]
     Indication: MATERNAL THERAPY TO ENHANCE FOETAL LUNG MATURITY
     Route: 064

REACTIONS (1)
  - MECONIUM PLUG SYNDROME [None]
